FAERS Safety Report 20831827 (Version 2)
Quarter: 2022Q2

REPORT INFORMATION
  Report Type: Spontaneous
  Country: US (occurrence: US)
  Receive Date: 20220516
  Receipt Date: 20220617
  Transmission Date: 20220721
  Serious: No
  Sender: FDA-Public Use
  Company Number: US-ORGANON-O2205USA000751

PATIENT
  Sex: Female
  Weight: 74.83 kg

DRUGS (3)
  1. NEXPLANON [Suspect]
     Active Substance: ETONOGESTREL
     Dosage: 1 ROD
     Route: 059
  2. NEXPLANON [Suspect]
     Active Substance: ETONOGESTREL
     Dosage: 1 ROD IN OPPOSITE ARM
     Route: 059
     Dates: start: 20220506
  3. NEXPLANON [Suspect]
     Active Substance: ETONOGESTREL
     Indication: Contraception
     Dosage: 1 ROD OF 68 MILLIGRAM
     Route: 059
     Dates: start: 20220415, end: 20220506

REACTIONS (8)
  - Implant site irritation [Recovering/Resolving]
  - Implant site pain [Recovering/Resolving]
  - Implant site paraesthesia [Recovering/Resolving]
  - Implant site scar [Recovering/Resolving]
  - Medical device site discomfort [Recovering/Resolving]
  - Device placement issue [Not Recovered/Not Resolved]
  - Complication of device removal [Recovered/Resolved]
  - Complication associated with device [Recovered/Resolved]

NARRATIVE: CASE EVENT DATE: 20220101
